FAERS Safety Report 9749706 (Version 2)
Quarter: 2014Q2

REPORT INFORMATION
  Report Type: Spontaneous
  Country: US (occurrence: US)
  Receive Date: 20131212
  Receipt Date: 20140530
  Transmission Date: 20141212
  Serious: No
  Sender: FDA-Public Use
  Company Number: US-009507513-1311USA011897

PATIENT
  Sex: Male
  Weight: 79.37 kg

DRUGS (5)
  1. MIRALAX [Suspect]
     Indication: HAEMORRHOIDS
     Dosage: UNK, QD
     Route: 048
     Dates: start: 2011
  2. COUMADIN [Concomitant]
     Indication: MITRAL VALVE REPAIR
     Dosage: UNK, UNKNOWN
  3. COUMADIN [Concomitant]
     Indication: ATRIAL FIBRILLATION
  4. DIOVAN [Concomitant]
     Indication: MITRAL VALVE REPAIR
     Dosage: UNK, UNKNOWN
  5. DIOVAN [Concomitant]
     Indication: ATRIAL FIBRILLATION

REACTIONS (2)
  - Haemorrhoids [Unknown]
  - Incorrect drug administration duration [Unknown]
